FAERS Safety Report 19020930 (Version 1)
Quarter: 2021Q1

REPORT INFORMATION
  Report Type: Other
  Country: KR (occurrence: KR)
  Receive Date: 20210317
  Receipt Date: 20210317
  Transmission Date: 20210420
  Serious: Yes (Other)
  Sender: FDA-Public Use
  Company Number: KR-ROCHE-2787050

PATIENT

DRUGS (4)
  1. CAPECITABINE. [Suspect]
     Active Substance: CAPECITABINE
     Indication: RECTAL CANCER
     Route: 048
  2. 5?FLUOROURACIL [Suspect]
     Active Substance: FLUOROURACIL
     Indication: RECTAL CANCER
     Route: 042
  3. OXALIPLATIN. [Suspect]
     Active Substance: OXALIPLATIN
     Indication: RECTAL CANCER
     Route: 065
  4. LEUCOVORIN. [Suspect]
     Active Substance: LEUCOVORIN
     Indication: RECTAL CANCER
     Route: 040

REACTIONS (12)
  - Nausea [Unknown]
  - Urinary incontinence [Unknown]
  - Anastomotic leak [Unknown]
  - Diarrhoea [Unknown]
  - Erectile dysfunction [Unknown]
  - Fatigue [Unknown]
  - Rectal tenesmus [Unknown]
  - Cystitis [Unknown]
  - Proctalgia [Unknown]
  - Anal incontinence [Unknown]
  - Hypophagia [Unknown]
  - Abdominal pain [Unknown]
